FAERS Safety Report 8885476 (Version 2)
Quarter: 2012Q4

REPORT INFORMATION
  Report Type: Report from Study
  Country: IT (occurrence: IT)
  Receive Date: 20121101
  Receipt Date: 20121109
  Transmission Date: 20130627
  Serious: No
  Sender: FDA-Public Use
  Company Number: IT-PFIZER INC-2012270313

PATIENT
  Age: 73 Year
  Sex: Female
  Weight: 77.9 kg

DRUGS (8)
  1. AXITINIB [Suspect]
     Indication: THYROID CANCER
     Dosage: 3 mg, 2x/day
     Route: 048
     Dates: start: 20080904, end: 20120702
  2. EUTIROX [Concomitant]
     Indication: HYPOTHYROIDISM
     Dosage: 150 ug, 1x/day
     Route: 048
     Dates: start: 20071116
  3. ROCALTROL [Concomitant]
     Indication: PROPHYLAXIS
     Dosage: 0.5 ug, 1x/day
     Route: 048
     Dates: start: 20071116
  4. SIVASTIN [Concomitant]
     Indication: HYPERCHOLESTEROLEMIA
     Dosage: 20 mg, 1x/day
     Route: 048
     Dates: start: 20071116
  5. CARDIOASPIRIN [Concomitant]
     Indication: THROMBOSIS PROPHYLAXIS
     Dosage: 1 DF, 1x/day
     Route: 048
     Dates: start: 20071116
  6. TAVOR [Concomitant]
     Indication: MOOD ALTERATION NOS
     Dosage: 1 mg, 2x/day
     Route: 048
     Dates: start: 20071116
  7. NAPRILENE [Concomitant]
     Indication: HYPERTENSION
     Dosage: 20 mg, 1x/day
     Route: 048
     Dates: start: 20071116
  8. CACIT D3 [Concomitant]
     Indication: PROPHYLAXIS
     Dosage: 1 sachet, 1x/day
     Route: 048
     Dates: start: 20090730

REACTIONS (1)
  - Myocardial infarction [Recovered/Resolved]
